FAERS Safety Report 6492849-9 (Version None)
Quarter: 2009Q4

REPORT INFORMATION
  Report Type: 
  Country: None (occurrence: None)
  Receive Date: 20091209
  Receipt Date: 20091124
  Transmission Date: 20100525
  Serious: No
  Sender: FDA-Public Use
  Company Number: CIO09021096

PATIENT
  Sex: Female

DRUGS (2)
  1. SINEX VAPOSPRAY 12 HOUR DECONGESTANT ULTRA FINE MIST (CAMPHOR, EUCALYP [Suspect]
     Dosage: INTRANASAL
  2. SINEX NASAL SPRAY OR MIST, VERSION UNKNOWN(CAMPHOR 0.067 MG, EUCALYPTU [Suspect]
     Dosage: INTRANASAL

REACTIONS (3)
  - INCORRECT DRUG ADMINISTRATION DURATION [None]
  - RESPIRATORY TRACT CONGESTION [None]
  - RESPIRATORY TRACT INFECTION [None]
